FAERS Safety Report 13719825 (Version 1)
Quarter: 2017Q3

REPORT INFORMATION
  Report Type: Spontaneous
  Country: US (occurrence: US)
  Receive Date: 20170705
  Receipt Date: 20170705
  Transmission Date: 20171127
  Serious: No
  Sender: FDA-Public Use
  Company Number: US-APTEVO BIOTHERAPEUTICS LLC-17WR00005SP

PATIENT
  Age: 34 Year
  Sex: Female

DRUGS (1)
  1. WINRHO SDF [Suspect]
     Active Substance: HUMAN RHO(D) IMMUNE GLOBULIN
     Indication: PROPHYLAXIS AGAINST RH ISOIMMUNISATION
     Dosage: UNK
     Dates: start: 20170201, end: 20170201

REACTIONS (3)
  - Heart rate increased [None]
  - Chills [Recovered/Resolved]
  - Tremor [None]

NARRATIVE: CASE EVENT DATE: 20170201
